FAERS Safety Report 8361361-4 (Version None)
Quarter: 2012Q2

REPORT INFORMATION
  Report Type: 
  Country: None (occurrence: None)
  Receive Date: 20120515
  Receipt Date: 20120110
  Transmission Date: 20120825
  Serious: Yes (Other)
  Sender: FDA-Public Use
  Company Number: US-ROCHE-793878

PATIENT
  Sex: Male

DRUGS (3)
  1. ACCUTANE [Suspect]
     Indication: ACNE
     Route: 048
     Dates: start: 19941001, end: 19950101
  2. ACCUTANE [Suspect]
     Route: 048
     Dates: start: 19950814, end: 19960101
  3. ACCUTANE [Suspect]
     Route: 048

REACTIONS (6)
  - IRRITABLE BOWEL SYNDROME [None]
  - BLOOD TRIGLYCERIDES INCREASED [None]
  - BLOOD CHOLESTEROL INCREASED [None]
  - INFLAMMATORY BOWEL DISEASE [None]
  - SOMNOLENCE [None]
  - DEPRESSION [None]
